FAERS Safety Report 7588319-7 (Version None)
Quarter: 2011Q3

REPORT INFORMATION
  Report Type: 
  Country: None (occurrence: None)
  Receive Date: 20110705
  Receipt Date: 20090521
  Transmission Date: 20111222
  Serious: Yes (Hospitalization, Other)
  Sender: FDA-Public Use
  Company Number: US-BAYER-200921130NA

PATIENT
  Age: 69 Year
  Sex: Female
  Weight: 130 kg

DRUGS (22)
  1. TRASYLOL [Suspect]
     Indication: TRICUSPID VALVE REPAIR
     Dosage: UNK, LOADING DOSE
     Route: 042
     Dates: start: 20040512, end: 20040512
  2. LIPITOR [Concomitant]
     Dosage: 20 MG, ONCE
     Route: 048
     Dates: start: 20040428
  3. TAGAMET [Concomitant]
     Dosage: 200 MG, UNK
  4. PROTAMINE SULFATE [Concomitant]
     Dosage: UNK
     Route: 042
     Dates: start: 20040512, end: 20040512
  5. RED BLOOD CELLS [Concomitant]
     Dosage: 2 U, ONCE
     Route: 042
     Dates: start: 20040512, end: 20040512
  6. NORVASC [Concomitant]
     Dosage: 10 MG, ONCE
     Route: 048
  7. HYDROCHLOROTHIAZIDE [Concomitant]
     Dosage: 25 MG, ONCE
     Route: 048
  8. MIDAZOLAM HCL [Concomitant]
     Dosage: UNK
     Route: 042
     Dates: start: 20040512, end: 20040512
  9. DIURIL [Concomitant]
  10. TRASYLOL [Suspect]
     Indication: COX-MAZE PROCEDURE
  11. VANCOMYCIN [Concomitant]
     Dosage: 1 G, UNK
     Route: 042
     Dates: start: 20040512, end: 20040515
  12. MILRINONE [Concomitant]
     Dosage: 20 MG, UNK
     Route: 042
     Dates: start: 20040512, end: 20040514
  13. INSULIN [Concomitant]
     Dosage: UNK
     Route: 042
     Dates: start: 20040512, end: 20040516
  14. TRASYLOL [Suspect]
     Indication: MITRAL VALVE REPLACEMENT
     Dosage: UNK, INITIAL TEST DOSE
     Route: 042
     Dates: start: 20040512, end: 20040512
  15. VECURONIUM BROMIDE [Concomitant]
     Dosage: UNK
     Route: 042
     Dates: start: 20040512
  16. FENTANYL [Concomitant]
     Dosage: UNK
     Route: 042
     Dates: start: 20040512, end: 20040512
  17. LASIX [Concomitant]
  18. PRILOSEC [Concomitant]
     Dosage: 20 MG, EVERY OTHER DAY
     Route: 048
     Dates: start: 20040428
  19. BENADRYL [Concomitant]
     Dosage: 50 MG, UNK
  20. HEPARIN [Concomitant]
     Dosage: 30000 U, UNK
     Route: 042
     Dates: start: 20040512, end: 20040515
  21. ACETYLSALICYLIC ACID SRT [Concomitant]
     Dosage: UNK
     Dates: start: 20040428
  22. PLASMA [Concomitant]
     Dosage: 2 U, ONCE
     Route: 042
     Dates: start: 20040512, end: 20040512

REACTIONS (10)
  - STRESS [None]
  - EMOTIONAL DISTRESS [None]
  - RENAL FAILURE ACUTE [None]
  - RENAL INJURY [None]
  - UNEVALUABLE EVENT [None]
  - FEAR [None]
  - RENAL FAILURE [None]
  - PAIN [None]
  - RENAL IMPAIRMENT [None]
  - ANXIETY [None]
